FAERS Safety Report 8555979-3 (Version None)
Quarter: 2012Q3

REPORT INFORMATION
  Report Type: 
  Country: None (occurrence: None)
  Receive Date: 20120801
  Receipt Date: 20120727
  Transmission Date: 20120928
  Serious: Yes (Other)
  Sender: FDA-Public Use
  Company Number: US-009507513-1207USA012210

PATIENT

DRUGS (18)
  1. PRINIVIL [Suspect]
     Route: 048
  2. COMBIVENT [Concomitant]
  3. LAFUTIDINE [Concomitant]
  4. CLONIDINE [Concomitant]
  5. CARDURA [Concomitant]
     Route: 048
  6. SYMBICORT [Suspect]
     Route: 055
  7. ZOCOR [Concomitant]
     Route: 048
  8. DOXEPIN HYDROCHLORIDE [Concomitant]
  9. SINGULAIR [Concomitant]
     Route: 048
  10. HYDROCHLOROTHIAZIDE [Concomitant]
  11. LIPITOR [Concomitant]
  12. CELEBREX [Concomitant]
  13. TOPROL-XL [Suspect]
     Route: 048
  14. CYCLOBENZAPRINE HCL [Concomitant]
  15. COLACE [Concomitant]
     Route: 048
  16. DEXASONE [Concomitant]
  17. ALBUTEROL SULFATE [Concomitant]
  18. ZYRTEC [Concomitant]

REACTIONS (26)
  - RECTAL HAEMORRHAGE [None]
  - CONSTIPATION [None]
  - FATIGUE [None]
  - HYPOTENSION [None]
  - MALAISE [None]
  - VISION BLURRED [None]
  - ANXIETY [None]
  - ARTHRALGIA [None]
  - ACCELERATED HYPERTENSION [None]
  - MUSCULOSKELETAL DISCOMFORT [None]
  - OEDEMA PERIPHERAL [None]
  - OEDEMA [None]
  - DRY MOUTH [None]
  - PRURITUS [None]
  - BACK PAIN [None]
  - NAUSEA [None]
  - OROPHARYNGEAL PAIN [None]
  - GASTROINTESTINAL DISORDER [None]
  - MUSCLE SPASMS [None]
  - COUGH [None]
  - DRY SKIN [None]
  - INFLUENZA [None]
  - GASTROOESOPHAGEAL REFLUX DISEASE [None]
  - ORTHOPNOEA [None]
  - SYNCOPE [None]
  - WHEEZING [None]
